FAERS Safety Report 9089646 (Version 1)
Quarter: 2013Q1

REPORT INFORMATION
  Report Type: Report from Study
  Country: US (occurrence: US)
  Receive Date: 20130218
  Receipt Date: 20130218
  Transmission Date: 20140127
  Serious: No
  Sender: FDA-Public Use
  Company Number: US-ABBOTT-12P-163-0924115-00

PATIENT
  Age: 49 None
  Sex: Male
  Weight: 69.01 kg

DRUGS (6)
  1. SIMCOR [Suspect]
     Indication: BLOOD CHOLESTEROL ABNORMAL
     Dosage: ONCE DAILY AT BEDTIME
     Route: 048
  2. SIMCOR [Suspect]
     Dosage: ONCE DAILY AT BEDTIME
     Route: 048
     Dates: start: 20120409
  3. SIMCOR [Suspect]
     Dosage: ONCE DAILY AT BEDTIME
     Route: 048
     Dates: start: 20120409
  4. ASPIRIN [Concomitant]
     Indication: PRODUCT USED FOR UNKNOWN INDICATION
     Dosage: 30 MINUTES PRIOR TO SIMCOR
     Route: 048
  5. UNKNOWN NATURAL SUPPLEMENTS [Concomitant]
     Indication: BLOOD CHOLESTEROL INCREASED
     Route: 048
  6. UNKNOWN NATURAL SUPPLEMENT [Concomitant]
     Indication: ARTHRALGIA
     Route: 048

REACTIONS (3)
  - Musculoskeletal pain [Recovered/Resolved]
  - Flushing [Recovered/Resolved]
  - Feeling hot [Recovered/Resolved]
